FAERS Safety Report 19394363 (Version 1)
Quarter: 2021Q2

REPORT INFORMATION
  Report Type: Spontaneous
  Country: US (occurrence: US)
  Receive Date: 20210608
  Receipt Date: 20210608
  Transmission Date: 20210717
  Serious: Yes (Other)
  Sender: FDA-Public Use
  Company Number: None

PATIENT
  Age: 80 Year
  Sex: Female
  Weight: 88.45 kg

DRUGS (6)
  1. FLONASE SENSIMIST ALLERGY RELIEF [Concomitant]
     Active Substance: FLUTICASONE FUROATE
  2. SYMBICORT [Suspect]
     Active Substance: BUDESONIDE\FORMOTEROL FUMARATE DIHYDRATE
     Indication: ASTHMA
     Dosage: 2 PUFFS TWICE DAILY AS NEEDED EVERY 6 HRS
     Dates: start: 20210401, end: 20210510
  3. PROBIOTIC [Concomitant]
     Active Substance: PROBIOTICS NOS
  4. VITAMIN D3 [Concomitant]
     Active Substance: CHOLECALCIFEROL
  5. GARLIC OIL [Concomitant]
     Active Substance: GARLIC OIL
  6. VITAMIN E [Concomitant]
     Active Substance: .ALPHA.-TOCOPHEROL

REACTIONS (9)
  - Lip swelling [None]
  - Coating in mouth [None]
  - Throat irritation [None]
  - Erythema [None]
  - Pyrexia [None]
  - Throat tightness [None]
  - Necrotising ulcerative gingivostomatitis [None]
  - Dysphonia [None]
  - Ocular hyperaemia [None]

NARRATIVE: CASE EVENT DATE: 20210415
